FAERS Safety Report 8508331-0 (Version None)
Quarter: 2012Q3

REPORT INFORMATION
  Report Type: 
  Country: None (occurrence: None)
  Receive Date: 20120713
  Receipt Date: 20120704
  Transmission Date: 20120928
  Serious: Yes (Hospitalization)
  Sender: FDA-Public Use
  Company Number: CA-JNJFOC-20120702903

PATIENT
  Sex: Male
  Weight: 74 kg

DRUGS (6)
  1. LOVENOX [Concomitant]
     Route: 065
  2. TESTOSTERONE [Concomitant]
     Route: 058
  3. PANTOPRAZOLE SODIUM [Concomitant]
     Route: 065
  4. REMICADE [Suspect]
     Indication: CROHN'S DISEASE
     Route: 042
     Dates: start: 20090301
  5. SODIUM CHLORIDE [Concomitant]
     Route: 065
  6. VITAMIN D [Concomitant]
     Route: 065

REACTIONS (1)
  - DEVICE RELATED INFECTION [None]
